FAERS Safety Report 23153484 (Version 1)
Quarter: 2023Q4

REPORT INFORMATION
  Report Type: Report from Study
  Country: US (occurrence: US)
  Receive Date: 20231107
  Receipt Date: 20231107
  Transmission Date: 20240109
  Serious: Yes (Other)
  Sender: FDA-Public Use
  Company Number: US-MYLANLABS-2023M1117593

PATIENT

DRUGS (6)
  1. DOXORUBICIN [Suspect]
     Active Substance: DOXORUBICIN
     Indication: Renal neoplasm
     Dosage: 37.5 MILLIGRAM/SQ. METER, CYCLE; ON DAYS 1 AND 2 (VDC REGIMEN)
     Route: 042
  2. CARBOPLATIN [Suspect]
     Active Substance: CARBOPLATIN
     Indication: Renal neoplasm
     Dosage: UNK, CYCLE; ON DAY 1 (ICE REGIMEN)
     Route: 042
  3. IFOSFAMIDE [Suspect]
     Active Substance: IFOSFAMIDE
     Indication: Renal neoplasm
     Dosage: 2000 MILLIGRAM/SQ. METER, CYCLE (ICE REGIMEN)
     Route: 042
  4. ETOPOSIDE [Suspect]
     Active Substance: ETOPOSIDE
     Indication: Renal neoplasm
     Dosage: 100 MILLIGRAM/SQ. METER, CYCLE; ON DAYS 2, 3 AND 4 (ICE REGIMEN)
     Route: 042
  5. VINCRISTINE [Suspect]
     Active Substance: VINCRISTINE
     Indication: Renal neoplasm
     Dosage: 1.5 MILLIGRAM/SQ. METER, CYCLE; ON DAYS 1, 8 AND 15 (VDC REGIMEN)
     Route: 042
  6. CYCLOPHOSPHAMIDE [Suspect]
     Active Substance: CYCLOPHOSPHAMIDE
     Indication: Renal neoplasm
     Dosage: UNK, CYCLE; ON DAY 1 (VDC REGIMEN)
     Route: 042

REACTIONS (2)
  - Diarrhoea [Unknown]
  - Off label use [Unknown]
